FAERS Safety Report 4946115-0 (Version None)
Quarter: 2006Q1

REPORT INFORMATION
  Report Type: 
  Country: None (occurrence: None)
  Receive Date: 20060316
  Receipt Date: 20050824
  Transmission Date: 20060701
  Serious: Yes (Hospitalization, Other)
  Sender: FDA-Public Use
  Company Number: US-MERCK-0508USA04112

PATIENT
  Age: 65 Year
  Sex: Male
  Weight: 91 kg

DRUGS (4)
  1. VIOXX [Suspect]
     Indication: ARTHRALGIA
     Route: 048
     Dates: start: 20000607, end: 20020802
  2. VIOXX [Suspect]
     Route: 048
     Dates: start: 20000607, end: 20020802
  3. ASPIRIN [Concomitant]
     Route: 065
  4. EXTRA STRENGTH TYLENOL [Concomitant]
     Route: 065

REACTIONS (21)
  - AMNESIA [None]
  - ANAEMIA [None]
  - BASAL CELL CARCINOMA [None]
  - CARDIAC ARREST [None]
  - COLITIS ISCHAEMIC [None]
  - CONFUSIONAL STATE [None]
  - CORONARY ARTERY DISEASE [None]
  - ECZEMA [None]
  - ELECTROCARDIOGRAM ABNORMAL [None]
  - GASTRODUODENITIS [None]
  - GASTROINTESTINAL DISORDER [None]
  - GASTROINTESTINAL HAEMORRHAGE [None]
  - HEPATIC FUNCTION ABNORMAL [None]
  - HIATUS HERNIA [None]
  - HYPERTENSION [None]
  - HYPOTENSION [None]
  - MOOD SWINGS [None]
  - MYOCARDIAL INFARCTION [None]
  - ONYCHOMYCOSIS [None]
  - SKIN LESION [None]
  - VENTRICULAR TACHYCARDIA [None]
